FAERS Safety Report 10074538 (Version 3)
Quarter: 2014Q2

REPORT INFORMATION
  Report Type: Spontaneous
  Country: IL (occurrence: IL)
  Receive Date: 20140412
  Receipt Date: 20140521
  Transmission Date: 20141212
  Serious: Yes (Other)
  Sender: FDA-Public Use
  Company Number: IL-009507513-1306ISR014068

PATIENT
  Age: 55 Year
  Sex: Female

DRUGS (9)
  1. VICTRELIS [Suspect]
     Indication: HEPATITIS C
     Dosage: UNK
     Route: 048
     Dates: start: 20130530, end: 20140402
  2. PEGASYS [Suspect]
     Indication: HEPATITIS C
     Dosage: UNK
     Dates: start: 20130502, end: 201306
  3. PEGASYS [Suspect]
     Dosage: UNK
     Dates: start: 2013, end: 2013
  4. PEGASYS [Suspect]
     Dosage: UNK
     Dates: start: 2013, end: 20131223
  5. PEGASYS [Suspect]
     Dosage: UNK
     Dates: start: 20131223, end: 20140402
  6. COPEGUS [Suspect]
     Indication: HEPATITIS C
     Dosage: UNK
     Dates: start: 20130502, end: 2013
  7. COPEGUS [Suspect]
     Dosage: UNK
     Dates: start: 2013, end: 20131223
  8. COPEGUS [Suspect]
     Dosage: UNK
     Dates: start: 20131223, end: 20140402
  9. EPREX [Concomitant]

REACTIONS (31)
  - Lymphoma [Not Recovered/Not Resolved]
  - Full blood count decreased [Recovering/Resolving]
  - Pain in extremity [Recovering/Resolving]
  - Gait disturbance [Unknown]
  - Sleep disorder [Unknown]
  - Weight increased [Unknown]
  - Blood count abnormal [Recovering/Resolving]
  - Full blood count increased [Recovering/Resolving]
  - Full blood count decreased [Recovering/Resolving]
  - Hyperhidrosis [Unknown]
  - Platelet count increased [Recovered/Resolved]
  - Lymph node pain [Unknown]
  - Immune system disorder [Unknown]
  - Wound [Not Recovered/Not Resolved]
  - Thyroid disorder [Unknown]
  - Injection site discomfort [Unknown]
  - Viral upper respiratory tract infection [Not Recovered/Not Resolved]
  - White blood cell count decreased [Recovering/Resolving]
  - Memory impairment [Not Recovered/Not Resolved]
  - Lymphadenopathy [Not Recovered/Not Resolved]
  - Pain in extremity [Not Recovered/Not Resolved]
  - Epistaxis [Recovered/Resolved]
  - Pruritus generalised [Unknown]
  - Myalgia [Unknown]
  - Depressed mood [Unknown]
  - Headache [Unknown]
  - Fatigue [Unknown]
  - Asthenia [Unknown]
  - Asthenia [Unknown]
  - Asthenia [Unknown]
  - Memory impairment [Not Recovered/Not Resolved]
